FAERS Safety Report 12616875 (Version 2)
Quarter: 2017Q1

REPORT INFORMATION
  Report Type: Spontaneous
  Country: US (occurrence: US)
  Receive Date: 20160802
  Receipt Date: 20170308
  Transmission Date: 20170428
  Serious: Yes (Other)
  Sender: FDA-Public Use
  Company Number: US-ROCHE-1807370

PATIENT
  Age: 72 Year
  Sex: Male

DRUGS (1)
  1. ESBRIET [Suspect]
     Active Substance: PIRFENIDONE
     Indication: IDIOPATHIC PULMONARY FIBROSIS
     Dosage: (3) 267 MG
     Route: 048
     Dates: start: 20141216

REACTIONS (6)
  - Abdominal discomfort [Recovered/Resolved]
  - Rash macular [Recovered/Resolved]
  - Nasopharyngitis [Recovering/Resolving]
  - Cardiac discomfort [Unknown]
  - Ear pruritus [Recovered/Resolved]
  - Sunburn [Recovered/Resolved]

NARRATIVE: CASE EVENT DATE: 20141216
